FAERS Safety Report 7933444-1 (Version None)
Quarter: 2011Q4

REPORT INFORMATION
  Report Type: 
  Country: None (occurrence: None)
  Receive Date: 20111122
  Receipt Date: 20111110
  Transmission Date: 20120403
  Serious: Yes (Hospitalization, Other)
  Sender: FDA-Public Use
  Company Number: US-ELI_LILLY_AND_COMPANY-US201111005032

PATIENT
  Sex: Female

DRUGS (7)
  1. FORTEO [Suspect]
     Indication: OSTEOPOROSIS
     Dosage: 20 UG, QD
     Dates: start: 20090901
  2. FORTEO [Suspect]
     Dosage: 20 UG, QD
     Dates: start: 20090901
  3. MIRALAX [Concomitant]
  4. ASPIRIN [Concomitant]
  5. CALCIUM [Concomitant]
  6. VITAMIN D [Concomitant]
  7. ANTACID                            /00108001/ [Concomitant]

REACTIONS (3)
  - FALL [None]
  - HYPOAESTHESIA [None]
  - HIP FRACTURE [None]
